FAERS Safety Report 12940465 (Version 23)
Quarter: 2020Q1

REPORT INFORMATION
  Report Type: Report from Study
  Country: US (occurrence: US)
  Receive Date: 20161114
  Receipt Date: 20200327
  Transmission Date: 20200409
  Serious: Yes (Hospitalization)
  Sender: FDA-Public Use
  Company Number: US-ACTELION-A-US2016-145287

PATIENT
  Age: 66 Year
  Sex: Female
  Weight: 86.17 kg

DRUGS (9)
  1. VELETRI [Suspect]
     Active Substance: EPOPROSTENOL
     Dosage: UNK
     Route: 042
  2. VELETRI [Suspect]
     Active Substance: EPOPROSTENOL
     Dosage: 38 NG/KG, PER MIN
     Route: 042
  3. VELETRI [Suspect]
     Active Substance: EPOPROSTENOL
     Dosage: 35 NG/KG, PER MIN
     Route: 042
  4. VELETRI [Suspect]
     Active Substance: EPOPROSTENOL
     Indication: PULMONARY ARTERIAL HYPERTENSION
     Dosage: 27 NG/KG, PER MIN
     Route: 042
     Dates: start: 20120509
  5. VELETRI [Suspect]
     Active Substance: EPOPROSTENOL
     Dosage: 29 NG/KG, PER MIN
     Route: 042
  6. OPSUMIT [Suspect]
     Active Substance: MACITENTAN
     Indication: PULMONARY ARTERIAL HYPERTENSION
     Dosage: 10 MG, QD
     Route: 048
     Dates: start: 20140828
  7. VELETRI [Suspect]
     Active Substance: EPOPROSTENOL
     Dosage: 45.5 NG/KG/MIN
     Route: 042
  8. VELETRI [Suspect]
     Active Substance: EPOPROSTENOL
     Dosage: 40 NG/KG, PER MIN
     Route: 042
  9. OPSUMIT [Suspect]
     Active Substance: MACITENTAN
     Dosage: 10 MG, QD
     Route: 048

REACTIONS (30)
  - Hip fracture [Unknown]
  - Fall [Unknown]
  - Escherichia infection [Recovered/Resolved]
  - Chills [Recovered/Resolved]
  - Pulmonary hypertension [Unknown]
  - Contusion [Recovered/Resolved]
  - Unevaluable event [Unknown]
  - Pain in jaw [Unknown]
  - Haemorrhage intracranial [Unknown]
  - Nausea [Recovered/Resolved]
  - Abnormal loss of weight [Unknown]
  - Tremor [Recovered/Resolved]
  - Vomiting [Recovered/Resolved]
  - Infection [Unknown]
  - Skin laceration [Unknown]
  - Ascites [Recovered/Resolved]
  - Hypotension [Recovered/Resolved]
  - Liver disorder [Unknown]
  - Asthenia [Not Recovered/Not Resolved]
  - Blood culture positive [Recovered/Resolved]
  - Enterobacter test positive [Recovered/Resolved]
  - Device related sepsis [Recovered/Resolved]
  - Pericardial effusion [Unknown]
  - Pleural effusion [Unknown]
  - Dehydration [Recovered/Resolved]
  - Oedema peripheral [Unknown]
  - Abdominal pain upper [Unknown]
  - Decreased appetite [Unknown]
  - Dermatitis contact [Unknown]
  - Skin irritation [Unknown]

NARRATIVE: CASE EVENT DATE: 20170801
